FAERS Safety Report 5735258-X (Version None)
Quarter: 2008Q2

REPORT INFORMATION
  Report Type: 
  Country: None (occurrence: None)
  Receive Date: 20080508
  Receipt Date: 20080508
  Transmission Date: 20081010
  Serious: Yes (Other)
  Sender: FDA-Public Use
  Company Number: None

PATIENT

DRUGS (1)
  1. TYLENOL W/ CODEINE NO. 3 [Suspect]

REACTIONS (2)
  - DIZZINESS [None]
  - PRURITUS [None]
